FAERS Safety Report 8020046-4 (Version None)
Quarter: 2011Q4

REPORT INFORMATION
  Report Type: 
  Country: None (occurrence: None)
  Receive Date: 20111227
  Receipt Date: 20111215
  Transmission Date: 20120403
  Serious: Yes (Other)
  Sender: FDA-Public Use
  Company Number: 216091

PATIENT
  Sex: Female

DRUGS (1)
  1. INNOHEP [Suspect]
     Indication: EMBOLISM VENOUS
     Dosage: 12000 IU (12000 IU, 1 IN 1 D), SUBCUTANEOUS 14000 IU (7000 IU, 2 IN 1 D), SUBCUTANEOUS
     Route: 058

REACTIONS (4)
  - DRUG INEFFECTIVE [None]
  - EMBOLISM VENOUS [None]
  - OFF LABEL USE [None]
  - DISEASE RECURRENCE [None]
